FAERS Safety Report 5504468-9 (Version None)
Quarter: 2007Q4

REPORT INFORMATION
  Report Type: 
  Country: None (occurrence: None)
  Receive Date: 20071101
  Receipt Date: 20071023
  Transmission Date: 20080405
  Serious: Yes (Other)
  Sender: FDA-Public Use
  Company Number: US-PFIZER INC-2007089571

PATIENT
  Sex: Female
  Weight: 56.818 kg

DRUGS (4)
  1. LIPITOR [Suspect]
     Indication: BLOOD CHOLESTEROL INCREASED
  2. GLYBURIDE [Concomitant]
  3. METFORMIN HCL [Concomitant]
  4. ASACOL [Concomitant]

REACTIONS (4)
  - ANAEMIA [None]
  - GAIT DISTURBANCE [None]
  - MUSCLE ATROPHY [None]
  - MUSCULAR WEAKNESS [None]
